FAERS Safety Report 25499219 (Version 1)
Quarter: 2025Q3

REPORT INFORMATION
  Report Type: Spontaneous
  Country: CN (occurrence: CN)
  Receive Date: 20250701
  Receipt Date: 20250701
  Transmission Date: 20251020
  Serious: Yes (Hospitalization, Other)
  Sender: Haleon PLC
  Company Number: CN-HALEON-2249866

PATIENT
  Age: 78 Year
  Sex: Male
  Weight: 46.6 kg

DRUGS (1)
  1. DICLOFENAC SODIUM [Suspect]
     Active Substance: DICLOFENAC SODIUM
     Indication: Gout
     Route: 048
     Dates: start: 20250609, end: 20250611

REACTIONS (3)
  - Renal failure [Recovered/Resolved]
  - Renal injury [Recovered/Resolved]
  - Blood creatinine increased [Recovered/Resolved]

NARRATIVE: CASE EVENT DATE: 20250614
